FAERS Safety Report 6800702-3 (Version None)
Quarter: 2010Q2

REPORT INFORMATION
  Report Type: 
  Country: None (occurrence: None)
  Receive Date: 20100629
  Receipt Date: 20100623
  Transmission Date: 20101027
  Serious: Yes (Other)
  Sender: FDA-Public Use
  Company Number: JP-BAYER-201012036BYL

PATIENT
  Age: 85 Year
  Sex: Female
  Weight: 56 kg

DRUGS (6)
  1. NEXAVAR [Suspect]
     Indication: HEPATIC NEOPLASM MALIGNANT
     Dosage: UNIT DOSE: 200 MG
     Route: 048
     Dates: start: 20100108, end: 20100412
  2. NEXAVAR [Suspect]
     Dosage: TOTAL DAILY DOSE: 400 MG  UNIT DOSE: 200 MG
     Route: 048
     Dates: start: 20100510, end: 20100607
  3. DIURETICS [Concomitant]
     Route: 065
  4. AMLODIN OD [Concomitant]
     Dosage: UNIT DOSE: 5 MG
     Route: 048
     Dates: start: 20100125
  5. AMLODIN [Concomitant]
     Dosage: UNIT DOSE: 2.5 MG
     Route: 048
     Dates: start: 20100315
  6. BLOPRESS [Concomitant]
     Dosage: UNIT DOSE: 8 MG
     Route: 048
     Dates: start: 20100125

REACTIONS (4)
  - BONE MARROW FAILURE [None]
  - HAEMOGLOBIN DECREASED [None]
  - HYPERTENSION [None]
  - OEDEMA PERIPHERAL [None]
